FAERS Safety Report 6142661-5 (Version None)
Quarter: 2009Q2

REPORT INFORMATION
  Report Type: 
  Country: None (occurrence: None)
  Receive Date: 20090403
  Receipt Date: 20090304
  Transmission Date: 20091009
  Serious: Yes (Other)
  Sender: FDA-Public Use
  Company Number: US-BAYER-200914356NA

PATIENT
  Sex: Female

DRUGS (2)
  1. MIRENA [Suspect]
     Indication: DRUG USE FOR UNKNOWN INDICATION
     Dosage: CONTINUOUS
     Route: 015
  2. MIRENA [Suspect]
     Dosage: CONTINUOUS
     Route: 015

REACTIONS (6)
  - ABDOMINAL PAIN LOWER [None]
  - IMPAIRED WORK ABILITY [None]
  - OVARIAN ADHESION [None]
  - OVARIAN CYST [None]
  - PAIN [None]
  - PELVIC PAIN [None]
